FAERS Safety Report 7152213-6 (Version None)
Quarter: 2010Q4

REPORT INFORMATION
  Report Type: 
  Country: None (occurrence: None)
  Receive Date: 20101213
  Receipt Date: 20101201
  Transmission Date: 20110411
  Serious: No
  Sender: FDA-Public Use
  Company Number: US-BIOGENIDEC-2010BI042532

PATIENT
  Age: 35 Year
  Sex: Female

DRUGS (2)
  1. TYSABRI [Suspect]
     Indication: MULTIPLE SCLEROSIS
     Route: 042
     Dates: start: 20100715
  2. TYSABRI [Suspect]
     Route: 042
     Dates: start: 20071109, end: 20091211

REACTIONS (2)
  - INCONTINENCE [None]
  - MEMORY IMPAIRMENT [None]
